FAERS Safety Report 9542277 (Version 2)
Quarter: 2013Q4

REPORT INFORMATION
  Report Type: Spontaneous
  Country: US (occurrence: None)
  Receive Date: 20130918
  Receipt Date: 20131218
  Transmission Date: 20140711
  Serious: Yes (Other)
  Sender: FDA-Public Use
  Company Number: 2013CT000067

PATIENT
  Age: 58 Year
  Sex: Female
  Weight: 58.06 kg

DRUGS (2)
  1. KORLYM [Suspect]
     Indication: PITUITARY-DEPENDENT CUSHING^S SYNDROME
     Route: 048
     Dates: start: 20130702
  2. CRESTOR [Suspect]

REACTIONS (3)
  - Night sweats [None]
  - Alopecia [None]
  - Hot flush [None]
